FAERS Safety Report 15969443 (Version 2)
Quarter: 2019Q1

REPORT INFORMATION
  Report Type: Spontaneous
  Country: US (occurrence: US)
  Receive Date: 20190215
  Receipt Date: 20190305
  Transmission Date: 20190418
  Serious: Yes (Death, Hospitalization)
  Sender: FDA-Public Use
  Company Number: US-ACTELION-A-NJ2019-186087

PATIENT
  Age: 71 Year
  Sex: Female

DRUGS (2)
  1. SILDENAFIL. [Concomitant]
     Active Substance: SILDENAFIL
     Dosage: UNK
     Dates: start: 20180920
  2. OPSUMIT [Suspect]
     Active Substance: MACITENTAN
     Indication: PULMONARY ARTERIAL HYPERTENSION
     Dosage: 10 MG, QD
     Route: 048
     Dates: start: 20180920, end: 20180925

REACTIONS (4)
  - Drug intolerance [Unknown]
  - Shunt blood flow excessive [Unknown]
  - Acute respiratory failure [Fatal]
  - Hypoxia [Unknown]

NARRATIVE: CASE EVENT DATE: 20180927
